FAERS Safety Report 4580143-2 (Version None)
Quarter: 2005Q1

REPORT INFORMATION
  Report Type: 
  Country: None (occurrence: None)
  Receive Date: 20050208
  Receipt Date: 20050125
  Transmission Date: 20050727
  Serious: Yes (Hospitalization)
  Sender: FDA-Public Use
  Company Number: 2005-00246

PATIENT
  Age: 76 Year
  Sex: Male

DRUGS (1)
  1. IMMUCYST (BCG - IT (CONNAUGHT)),AVENTIS PASTEUR LTD. [Suspect]
     Indication: BLADDER CANCER
     Dosage: (81.0 MG) B.IN., BLADDER
     Dates: start: 20040709

REACTIONS (1)
  - DISSEMINATED TUBERCULOSIS [None]
